FAERS Safety Report 12528874 (Version 1)
Quarter: 2016Q3

REPORT INFORMATION
  Report Type: Report from Study
  Country: CA (occurrence: CA)
  Receive Date: 20160705
  Receipt Date: 20160705
  Transmission Date: 20161109
  Serious: Yes (Other)
  Sender: FDA-Public Use
  Company Number: CA-JNJFOC-20160701346

PATIENT
  Age: 60 Year
  Sex: Female
  Weight: 53.8 kg

DRUGS (1)
  1. REMICADE [Suspect]
     Active Substance: INFLIXIMAB
     Indication: CROHN^S DISEASE
     Route: 042
     Dates: start: 20100407

REACTIONS (4)
  - Lung infection [Unknown]
  - Frequent bowel movements [Unknown]
  - Inappropriate schedule of drug administration [Unknown]
  - Off label use [Unknown]

NARRATIVE: CASE EVENT DATE: 20100407
